FAERS Safety Report 18940788 (Version 2)
Quarter: 2022Q4

REPORT INFORMATION
  Report Type: Spontaneous
  Country: DE (occurrence: DE)
  Receive Date: 20210225
  Receipt Date: 20221129
  Transmission Date: 20230113
  Serious: Yes (Hospitalization)
  Sender: FDA-Public Use
  Company Number: None

PATIENT
  Age: 31 Year
  Sex: Female
  Weight: 60 kg

DRUGS (1)
  1. KYLEENA [Suspect]
     Active Substance: LEVONORGESTREL
     Indication: Contraception
     Dosage: 17.5?G/DAY
     Route: 015
     Dates: start: 20180517, end: 20201229

REACTIONS (26)
  - Dyspnoea [Recovering/Resolving]
  - Dizziness [Recovering/Resolving]
  - Seborrhoea [Recovering/Resolving]
  - Anxiety [Recovering/Resolving]
  - Contact lens intolerance [Recovering/Resolving]
  - Hypoaesthesia [Recovering/Resolving]
  - Anaemia [Recovering/Resolving]
  - Sleep disorder [Recovering/Resolving]
  - Nausea [Recovering/Resolving]
  - Skin disorder [Recovering/Resolving]
  - Dry eye [Recovering/Resolving]
  - Temporomandibular joint syndrome [Recovering/Resolving]
  - Alopecia [Recovering/Resolving]
  - General physical health deterioration [Recovering/Resolving]
  - Lactation disorder [Recovering/Resolving]
  - Panic attack [Recovering/Resolving]
  - Dry skin [Recovering/Resolving]
  - Loss of libido [Recovering/Resolving]
  - Nocturia [Recovering/Resolving]
  - Restlessness [Recovering/Resolving]
  - Weight abnormal [Recovering/Resolving]
  - Restless legs syndrome [Recovering/Resolving]
  - Mineral deficiency [Recovering/Resolving]
  - Palpitations [Recovering/Resolving]
  - Skin odour abnormal [Recovering/Resolving]
  - Hypovitaminosis [Recovering/Resolving]

NARRATIVE: CASE EVENT DATE: 20180601
